FAERS Safety Report 22610436 (Version 1)
Quarter: 2023Q2

REPORT INFORMATION
  Report Type: Spontaneous
  Country: US (occurrence: None)
  Receive Date: 20230615
  Receipt Date: 20230615
  Transmission Date: 20230721
  Serious: Yes (Hospitalization)
  Sender: FDA-Public Use
  Company Number: None

PATIENT
  Age: 52 Year
  Sex: Female
  Weight: 83.4 kg

DRUGS (1)
  1. EPCORITAMAB [Suspect]
     Active Substance: EPCORITAMAB
     Indication: Diffuse large B-cell lymphoma
     Dosage: FREQUENCY : WEEKLY;?
     Route: 058
     Dates: start: 20230522

REACTIONS (4)
  - Dehydration [None]
  - Hypovolaemia [None]
  - Blood pressure decreased [None]
  - Hyponatraemia [None]

NARRATIVE: CASE EVENT DATE: 20230614
